FAERS Safety Report 21296112 (Version 2)
Quarter: 2022Q3

REPORT INFORMATION
  Report Type: Spontaneous
  Country: TW (occurrence: TW)
  Receive Date: 20220906
  Receipt Date: 20220908
  Transmission Date: 20221026
  Serious: Yes (Hospitalization, Other)
  Sender: FDA-Public Use
  Company Number: TW-ALKEM LABORATORIES LIMITED-TW-ALKEM-2022-09068

PATIENT
  Age: 16 Year
  Sex: Female

DRUGS (2)
  1. AZATHIOPRINE [Suspect]
     Active Substance: AZATHIOPRINE
     Indication: Myasthenia gravis
     Dosage: 0.8 MILLIGRAM/KILOGRAM, QD
     Route: 065
     Dates: start: 202001
  2. AZATHIOPRINE [Suspect]
     Active Substance: AZATHIOPRINE
     Dosage: 1.6 MILLIGRAM/KILOGRAM, QD
     Route: 065

REACTIONS (13)
  - Diarrhoea haemorrhagic [Recovered/Resolved]
  - Large intestinal ulcer [Recovered/Resolved]
  - Pancytopenia [Recovered/Resolved]
  - Alopecia [Recovered/Resolved]
  - Pyrexia [Unknown]
  - Decreased appetite [Unknown]
  - Oropharyngeal pain [Unknown]
  - Enterocolitis [Unknown]
  - Lymphadenopathy [Unknown]
  - Prothrombin time prolonged [Unknown]
  - Renal impairment [Unknown]
  - Fatigue [Unknown]
  - Septic shock [Unknown]
